FAERS Safety Report 5697531-3 (Version None)
Quarter: 2008Q2

REPORT INFORMATION
  Report Type: 
  Country: None (occurrence: None)
  Receive Date: 20080408
  Receipt Date: 20080202
  Transmission Date: 20081010
  Serious: No
  Sender: FDA-Public Use
  Company Number: US-BAYER-200813301NA

PATIENT
  Age: 26 Year
  Sex: Female
  Weight: 89 kg

DRUGS (2)
  1. MIRENA [Suspect]
     Indication: CONTRACEPTION
     Route: 015
     Dates: start: 20080130
  2. STARLIX [Concomitant]
     Indication: DIABETES MELLITUS
     Route: 048
     Dates: start: 20070801

REACTIONS (1)
  - GENITAL PAIN [None]
